FAERS Safety Report 22788800 (Version 7)
Quarter: 2023Q4

REPORT INFORMATION
  Report Type: Spontaneous
  Country: GR (occurrence: GR)
  Receive Date: 20230804
  Receipt Date: 20231025
  Transmission Date: 20240110
  Serious: No
  Sender: FDA-Public Use
  Company Number: GR-PFIZER INC-PV202300128876

PATIENT
  Age: 13 Year
  Sex: Male
  Weight: 45 kg

DRUGS (2)
  1. GENOTROPIN [Suspect]
     Active Substance: SOMATROPIN
     Indication: Growth hormone deficiency
     Dosage: 4 DAYS 1MG AND 2 DAYS 2 MG / 6 DAYS (1 DAY OFF)
     Route: 058
     Dates: start: 202204
  2. GENOTROPIN [Suspect]
     Active Substance: SOMATROPIN
     Dosage: 4 DAYS 1MG AND 2 DAYS 2 MG / 6 DAYS (1 DAY OFF)
     Route: 058

REACTIONS (4)
  - Wrong technique in device usage process [Unknown]
  - Device use error [Unknown]
  - Product storage error [Unknown]
  - Device breakage [Unknown]

NARRATIVE: CASE EVENT DATE: 20230724
